FAERS Safety Report 11269993 (Version 2)
Quarter: 2015Q4

REPORT INFORMATION
  Report Type: Spontaneous
  Country: US (occurrence: US)
  Receive Date: 20150714
  Receipt Date: 20151013
  Transmission Date: 20160304
  Serious: Yes (Other)
  Sender: FDA-Public Use
  Company Number: US-MALLINCKRODT-T201503314

PATIENT
  Sex: Female

DRUGS (5)
  1. GABLOFEN [Suspect]
     Active Substance: BACLOFEN
     Indication: MUSCLE SPASTICITY
     Dosage: 2000 MCG/ML, AT A DOSE OF 570 MCG/DAY
     Route: 037
  2. GABLOFEN [Suspect]
     Active Substance: BACLOFEN
     Dosage: 2000 MCG/ML, AT A DOSE OF 96 MCG/DAY
     Route: 037
  3. GABLOFEN [Suspect]
     Active Substance: BACLOFEN
     Dosage: 2000 MCG/ML, AT A DOSE OF 12.2 MCG/DAY
     Route: 037
     Dates: end: 20150605
  4. GABLOFEN [Suspect]
     Active Substance: BACLOFEN
     Dosage: 500 MCG/ML, AT A DOSE OF 39.98 MCG/DAY
     Route: 037
     Dates: start: 20150605
  5. GABLOFEN [Suspect]
     Active Substance: BACLOFEN
     Dosage: 500 MCG/ML, AT A DOSE OF 55 MCG/DAY
     Route: 037
     Dates: start: 20150618

REACTIONS (2)
  - Respiratory arrest [Recovering/Resolving]
  - Somnolence [Recovering/Resolving]
